FAERS Safety Report 15497971 (Version 1)
Quarter: 2018Q4

REPORT INFORMATION
  Report Type: Spontaneous
  Country: US (occurrence: US)
  Receive Date: 20181005
  Receipt Date: 20181005
  Transmission Date: 20190205
  Serious: Yes (Death)
  Sender: FDA-Public Use
  Company Number: None

PATIENT
  Sex: Male

DRUGS (2)
  1. ENOXAPARIN, 120 MG [Suspect]
     Active Substance: ENOXAPARIN SODIUM
     Indication: PULMONARY EMBOLISM
     Route: 058
     Dates: start: 20180110
  2. LYSODREN [Suspect]
     Active Substance: MITOTANE
     Indication: ADRENAL GLAND CANCER
     Route: 048
     Dates: start: 20171102

REACTIONS (1)
  - Death [None]
